FAERS Safety Report 9131794 (Version 5)
Quarter: 2014Q2

REPORT INFORMATION
  Report Type: Report from Study
  Country: US (occurrence: US)
  Receive Date: 20130301
  Receipt Date: 20140520
  Transmission Date: 20141212
  Serious: Yes (Congenital Anomaly)
  Sender: FDA-Public Use
  Company Number: US-TEVA-368376USA

PATIENT
  Age: 0 Year
  Sex: Male
  Weight: 9.58 kg

DRUGS (6)
  1. PROVIGIL [Suspect]
     Route: 065
  2. PRENATAL VITAMIN [Concomitant]
     Indication: PREGNANCY
     Dosage: QD
     Route: 065
     Dates: start: 20120922
  3. FIORICET [Concomitant]
     Indication: HEADACHE
     Dosage: 1 TAB PRN
     Dates: start: 20121025, end: 20121101
  4. KEFLEX [Concomitant]
     Indication: FURUNCLE
     Dosage: QID X 7 DAYS
     Dates: start: 20121102, end: 20121106
  5. MUPIROCIN [Concomitant]
     Indication: FURUNCLE
     Dosage: APPLY THREE X A DAY
     Route: 061
     Dates: start: 20121102
  6. PHENERGAN [Concomitant]
     Indication: MIGRAINE
     Dosage: 4-6 HOUS PRN
     Dates: start: 20121228

REACTIONS (2)
  - Congenital choroidal anomaly [Unknown]
  - Umbilical hernia [Unknown]
